FAERS Safety Report 18210292 (Version 2)
Quarter: 2020Q3

REPORT INFORMATION
  Report Type: Spontaneous
  Country: US (occurrence: US)
  Receive Date: 20200829
  Receipt Date: 20200907
  Transmission Date: 20201103
  Serious: Yes (Hospitalization, Other)
  Sender: FDA-Public Use
  Company Number: US-SA-2020SA226519

PATIENT

DRUGS (2)
  1. LIDOCAINE. [Suspect]
     Active Substance: LIDOCAINE
     Dosage: 8 TO 10 TSPS (800 TO 1,000 MG) HAD BEEN GIVEN OVER A NINE? TO 12?HOUR PERIOD
     Route: 048
  2. LIDOCAINE. [Suspect]
     Active Substance: LIDOCAINE
     Indication: ORAL HERPES
     Dosage: 1 TSP ORALLY EVERY FOUR HOURS
     Route: 048

REACTIONS (4)
  - Intentional product misuse [Recovering/Resolving]
  - Seizure [Recovering/Resolving]
  - Neurotoxicity [Recovering/Resolving]
  - Depressed level of consciousness [Unknown]
